FAERS Safety Report 6662146-7 (Version None)
Quarter: 2010Q1

REPORT INFORMATION
  Report Type: 
  Country: None (occurrence: None)
  Receive Date: 20100331
  Receipt Date: 20100326
  Transmission Date: 20100710
  Serious: Yes (Other)
  Sender: FDA-Public Use
  Company Number: US-WYE-H13589310

PATIENT
  Sex: Male
  Weight: 121.58 kg

DRUGS (1)
  1. XYNTHA [Suspect]
     Indication: FACTOR VIII DEFICIENCY
     Route: 042
     Dates: start: 20100101, end: 20100101

REACTIONS (4)
  - DRUG EFFECT DECREASED [None]
  - HAEMARTHROSIS [None]
  - HEADACHE [None]
  - RASH [None]
